FAERS Safety Report 8372854-8 (Version None)
Quarter: 2012Q2

REPORT INFORMATION
  Report Type: 
  Country: None (occurrence: None)
  Receive Date: 20120521
  Receipt Date: 20120518
  Transmission Date: 20120825
  Serious: Yes (Hospitalization)
  Sender: FDA-Public Use
  Company Number: US-PFIZER INC-2012121502

PATIENT
  Sex: Female
  Weight: 83.447 kg

DRUGS (4)
  1. CHANTIX [Suspect]
     Indication: SMOKING CESSATION THERAPY
     Dosage: 0.5 MG, DAILY
     Route: 048
     Dates: start: 20110416, end: 20110401
  2. PHENYTOIN SODIUM [Concomitant]
     Indication: EPILEPSY
     Dosage: 100 MG, 2X/DAY
     Route: 048
  3. KEPPRA [Concomitant]
     Indication: EPILEPSY
     Dosage: 500 MG, 3X/DAY
  4. SYNTHROID [Concomitant]
     Indication: THYROID DISORDER
     Dosage: 0.125 UG, DAILY

REACTIONS (3)
  - CONVULSION [None]
  - FALL [None]
  - FOOT FRACTURE [None]
